FAERS Safety Report 25095167 (Version 1)
Quarter: 2025Q1

REPORT INFORMATION
  Report Type: Spontaneous
  Country: US (occurrence: US)
  Receive Date: 20250319
  Receipt Date: 20250319
  Transmission Date: 20250409
  Serious: No
  Sender: GALDERMA
  Company Number: US-GALDERMA-US2024016332

PATIENT

DRUGS (6)
  1. PROACTIV MD ADAPALENE ACNE TREATMENT [Suspect]
     Active Substance: ADAPALENE
     Indication: Pruritus
     Route: 061
     Dates: start: 202410
  2. PROACTIV MD ADAPALENE ACNE TREATMENT [Suspect]
     Active Substance: ADAPALENE
     Indication: Acne
  3. COSMETICS [Concomitant]
     Active Substance: COSMETICS
     Indication: Pruritus
     Route: 061
  4. COSMETICS [Concomitant]
     Active Substance: COSMETICS
     Indication: Acne
  5. COSMETICS [Concomitant]
     Active Substance: COSMETICS
     Indication: Pruritus
     Route: 061
  6. COSMETICS [Concomitant]
     Active Substance: COSMETICS
     Indication: Acne

REACTIONS (5)
  - Pruritus [Not Recovered/Not Resolved]
  - Acne [Not Recovered/Not Resolved]
  - Skin irritation [Not Recovered/Not Resolved]
  - Hypersensitivity [Not Recovered/Not Resolved]
  - Seborrhoea [Not Recovered/Not Resolved]

NARRATIVE: CASE EVENT DATE: 20241001
